FAERS Safety Report 7249223-7 (Version None)
Quarter: 2011Q1

REPORT INFORMATION
  Report Type: 
  Country: None (occurrence: None)
  Receive Date: 20110128
  Receipt Date: 20101206
  Transmission Date: 20110831
  Serious: Yes (Hospitalization, Other)
  Sender: FDA-Public Use
  Company Number: JP-BAYER-2010-003104

PATIENT
  Sex: Female
  Weight: 79 kg

DRUGS (4)
  1. SORAFENIB (RAF KINASE INHIBITOR) [Suspect]
     Indication: RENAL CELL CARCINOMA
     Dosage: 800 MG, QD
     Route: 048
     Dates: start: 20080512, end: 20101008
  2. ZYLORIC [Concomitant]
     Dosage: 100 MG, QD
     Route: 048
     Dates: start: 20100524
  3. TOWARAT [Concomitant]
     Dosage: 40 MG, UNK
     Route: 048
  4. ATENOLOL [Concomitant]
     Dosage: 25 MG, QD
     Route: 048

REACTIONS (8)
  - RASH [None]
  - LIPASE INCREASED [None]
  - HYPOPHOSPHATAEMIA [None]
  - CEREBELLAR INFARCTION [None]
  - BLOOD AMYLASE INCREASED [None]
  - PALMAR-PLANTAR ERYTHRODYSAESTHESIA SYNDROME [None]
  - LIVER DISORDER [None]
  - ALOPECIA [None]
